FAERS Safety Report 5127040-1 (Version None)
Quarter: 2006Q4

REPORT INFORMATION
  Report Type: 
  Country: None (occurrence: None)
  Receive Date: 20061013
  Receipt Date: 20060926
  Transmission Date: 20070319
  Serious: Yes (Hospitalization, Other)
  Sender: FDA-Public Use
  Company Number: DE-GLAXOSMITHKLINE-D0050983A

PATIENT
  Age: 75 Year
  Sex: Male

DRUGS (6)
  1. QUILONUM RETARD [Suspect]
     Indication: BIPOLAR DISORDER
     Dosage: 225MG TWICE PER DAY
     Route: 048
     Dates: start: 19760101
  2. ISOKET RETARD [Concomitant]
     Dosage: 40MG TWICE PER DAY
     Route: 048
  3. NIFEDIPINE [Concomitant]
     Route: 048
  4. LEVOTHYROXINE SODIUM [Concomitant]
     Dosage: 50MCG PER DAY
     Route: 048
  5. VESDIL [Concomitant]
     Dosage: 2.5MG PER DAY
     Route: 048
  6. SIOFOR [Concomitant]
     Dosage: 2125MG PER DAY
     Route: 048

REACTIONS (3)
  - ELECTROCARDIOGRAM ABNORMAL [None]
  - SINUS BRADYCARDIA [None]
  - SYNCOPE [None]
